FAERS Safety Report 5416774-7 (Version None)
Quarter: 2007Q3

REPORT INFORMATION
  Report Type: 
  Country: None (occurrence: None)
  Receive Date: 20070718
  Receipt Date: 20070207
  Transmission Date: 20080115
  Serious: Yes (Hospitalization, Other)
  Sender: FDA-Public Use
  Company Number: 2006052346

PATIENT
  Sex: Female
  Weight: 65.8 kg

DRUGS (2)
  1. CELEBREX [Suspect]
     Indication: ARTHRITIS
     Dosage: ORAL
     Route: 048
     Dates: start: 20000101, end: 20020101
  2. CELEBREX [Suspect]
     Indication: PAIN MANAGEMENT
     Dosage: ORAL
     Route: 048
     Dates: start: 20000101, end: 20020101

REACTIONS (3)
  - CEREBROVASCULAR ACCIDENT [None]
  - DEPRESSION [None]
  - MYOCARDIAL INFARCTION [None]
